FAERS Safety Report 21484666 (Version 1)
Quarter: 2022Q4

REPORT INFORMATION
  Report Type: Spontaneous
  Country: JP (occurrence: JP)
  Receive Date: 20221020
  Receipt Date: 20221020
  Transmission Date: 20230113
  Serious: Yes (Other)
  Sender: FDA-Public Use
  Company Number: JP-MTPC-MTPC2022-0028213

PATIENT
  Age: 10 Year
  Sex: Male

DRUGS (1)
  1. REMICADE [Suspect]
     Active Substance: INFLIXIMAB
     Indication: Kawasaki^s disease
     Dosage: 5 MILLIGRAM/KILOGRAM, QD
     Route: 041

REACTIONS (2)
  - Device related infection [Unknown]
  - Therapeutic response decreased [Unknown]
